FAERS Safety Report 4672785-0 (Version None)
Quarter: 2005Q2

REPORT INFORMATION
  Report Type: 
  Country: None (occurrence: None)
  Receive Date: 20050523
  Receipt Date: 20050509
  Transmission Date: 20051028
  Serious: Yes (Hospitalization)
  Sender: FDA-Public Use
  Company Number: HQWYE474627JUL04

PATIENT
  Age: 59 Year
  Sex: Male

DRUGS (9)
  1. RAPAMUNE [Suspect]
     Indication: PROPHYLAXIS AGAINST TRANSPLANT REJECTION
     Dosage: SEE IMAGE,ORAL
     Route: 048
     Dates: start: 20040706, end: 20041231
  2. RAPAMUNE [Suspect]
     Indication: PROPHYLAXIS AGAINST TRANSPLANT REJECTION
     Dosage: SEE IMAGE,ORAL
     Route: 048
     Dates: start: 20050101
  3. CYCLOSPORINE [Concomitant]
  4. PREDNISONE [Concomitant]
  5. RANITIDINE [Concomitant]
  6. ASPIRIN [Concomitant]
  7. BACTRIM [Concomitant]
  8. AMLODIPINE [Concomitant]
  9. NISTATIN (NYSTATIN) [Concomitant]

REACTIONS (5)
  - BLOOD CREATININE INCREASED [None]
  - HAEMATOCRIT DECREASED [None]
  - HAEMOGLOBIN DECREASED [None]
  - RENAL HAEMATOMA [None]
  - RENAL PAIN [None]
